FAERS Safety Report 14347313 (Version 1)
Quarter: 2018Q1

REPORT INFORMATION
  Report Type: Spontaneous
  Country: US (occurrence: US)
  Receive Date: 20180102
  Receipt Date: 20180102
  Transmission Date: 20180509
  Serious: No
  Sender: FDA-Public Use
  Company Number: None

PATIENT
  Age: 60 Year
  Sex: Female
  Weight: 65.25 kg

DRUGS (4)
  1. CLINDAMYCIN HCL [Suspect]
     Active Substance: CLINDAMYCIN HYDROCHLORIDE
     Indication: TOOTH INFECTION
     Dosage: ?          QUANTITY:28 CAPSULE(S);?
     Route: 048
     Dates: start: 20171230, end: 20180102
  2. C-PAP [Concomitant]
  3. UARS [Concomitant]
  4. KIRKLAND MULTIVITAMINS [Concomitant]

REACTIONS (7)
  - Sedation [None]
  - Fatigue [None]
  - Disturbance in attention [None]
  - Somnolence [None]
  - Gait disturbance [None]
  - Disorientation [None]
  - Hypersomnia [None]

NARRATIVE: CASE EVENT DATE: 20171230
